FAERS Safety Report 9170343 (Version 1)
Quarter: 2013Q1

REPORT INFORMATION
  Report Type: Spontaneous
  Country: FR (occurrence: None)
  Receive Date: 20130308
  Receipt Date: 20130308
  Transmission Date: 20140127
  Serious: Yes (Hospitalization)
  Sender: FDA-Public Use
  Company Number: SYM-2013-01389

PATIENT
  Age: 49 Year
  Sex: Female

DRUGS (4)
  1. FLAGYL (METRONIDAZOLE) (UNKNOWN) (METRONIDAZOLE) [Suspect]
     Indication: LUNG DISORDER
     Dates: start: 201301, end: 201301
  2. OFLOCET (OFLOXACIN) [Suspect]
     Indication: URINARY TRACT INFECTION
     Dates: start: 201301, end: 201301
  3. CLAMOXYL [Suspect]
     Indication: LUNG DISORDER
     Route: 048
     Dates: start: 201201
  4. KEPPRA (LEVETIRACETAM) (TABLETS) (LEVETIRACETAM) [Concomitant]
     Indication: EPILEPSY
     Route: 048
     Dates: start: 201201

REACTIONS (1)
  - Hepatitis [None]
